FAERS Safety Report 4767172-0 (Version None)
Quarter: 2005Q3

REPORT INFORMATION
  Report Type: 
  Country: None (occurrence: None)
  Receive Date: 20050909
  Receipt Date: 20050825
  Transmission Date: 20060218
  Serious: Yes (Hospitalization, Other)
  Sender: FDA-Public Use
  Company Number: 189871

PATIENT
  Age: 35 Year
  Sex: Female

DRUGS (1)
  1. AVONEX [Suspect]
     Indication: MULTIPLE SCLEROSIS
     Dosage: SEE IMAGE
     Route: 030
     Dates: start: 20020201, end: 20050501

REACTIONS (6)
  - BLINDNESS [None]
  - DEPRESSION [None]
  - HAEMANGIOMA [None]
  - MASS [None]
  - NERVOUS SYSTEM DISORDER [None]
  - SURGERY [None]
